FAERS Safety Report 10384402 (Version 1)
Quarter: 2014Q3

REPORT INFORMATION
  Report Type: Spontaneous
  Country: US (occurrence: None)
  Receive Date: 20140812
  Receipt Date: 20140812
  Transmission Date: 20150326
  Serious: Yes (Death, Hospitalization)
  Sender: FDA-Public Use
  Company Number: 2014080016

PATIENT
  Age: 84 Year
  Sex: Male

DRUGS (6)
  1. FOXAIR [Suspect]
     Active Substance: FLUTICASONE PROPIONATE\SALMETEROL XINAFOATE
     Indication: ASTHMA
     Dosage: RESPIRATORY INHALATION
     Dates: start: 201406
  2. FORVENT COMPLETE (TIOTROPIUM BROMIDE) [Concomitant]
     Route: 048
  3. ASPAVOR (ATORVASTATIN CALCIUM) [Concomitant]
     Indication: BLOOD CHOLESTEROL
     Route: 048
     Dates: start: 2009
  4. WARFARIN (WARFARIN) [Suspect]
     Active Substance: WARFARIN
     Route: 048
  5. UNAT [Suspect]
     Active Substance: TORSEMIDE
     Indication: DIURETIC THERAPY
     Route: 048
     Dates: start: 201406
  6. ADCO-ZOLPIDEM [Suspect]
     Active Substance: ZOLPIDEM TARTRATE
     Indication: INSOMNIA
     Route: 048
     Dates: start: 201406

REACTIONS (1)
  - Pneumonia [None]

NARRATIVE: CASE EVENT DATE: 20140702
